FAERS Safety Report 8496157-6 (Version None)
Quarter: 2012Q3

REPORT INFORMATION
  Report Type: 
  Country: None (occurrence: None)
  Receive Date: 20120709
  Receipt Date: 20120628
  Transmission Date: 20120928
  Serious: No
  Sender: FDA-Public Use
  Company Number: CA-JNJFOC-20120700415

PATIENT
  Sex: Male
  Weight: 78 kg

DRUGS (4)
  1. MULTIVITAMINES [Concomitant]
     Route: 065
  2. CALCIUM [Concomitant]
     Route: 065
  3. REMICADE [Suspect]
     Indication: CROHN'S DISEASE
     Route: 042
     Dates: start: 20070801
  4. VITAMIN D [Concomitant]
     Route: 065

REACTIONS (2)
  - RASH [None]
  - PHARYNGITIS STREPTOCOCCAL [None]
